FAERS Safety Report 10235623 (Version 3)
Quarter: 2014Q4

REPORT INFORMATION
  Report Type: Report from Study
  Country: US (occurrence: US)
  Receive Date: 20140613
  Receipt Date: 20141124
  Transmission Date: 20150528
  Serious: Yes (Hospitalization)
  Sender: FDA-Public Use
  Company Number: US-SA-2014SA075291

PATIENT
  Age: 52 Year
  Sex: Female

DRUGS (2)
  1. AUBAGIO [Suspect]
     Active Substance: TERIFLUNOMIDE
     Indication: MULTIPLE SCLEROSIS
     Route: 048
     Dates: end: 201411
  2. AUBAGIO [Suspect]
     Active Substance: TERIFLUNOMIDE
     Indication: MULTIPLE SCLEROSIS
     Route: 048
     Dates: start: 20140218, end: 20140519

REACTIONS (7)
  - Unevaluable event [Unknown]
  - Dehydration [Unknown]
  - Dysgraphia [Unknown]
  - Drug dose omission [Unknown]
  - Visual impairment [Unknown]
  - Diplopia [Unknown]
  - Diarrhoea [Unknown]
